FAERS Safety Report 5233927-1 (Version None)
Quarter: 2007Q1

REPORT INFORMATION
  Report Type: 
  Country: None (occurrence: None)
  Receive Date: 20070208
  Receipt Date: 20070202
  Transmission Date: 20070707
  Serious: Yes (Other)
  Sender: FDA-Public Use
  Company Number: ES-SANOFI-SYNTHELABO-F01200700155

PATIENT
  Sex: Female
  Weight: 62 kg

DRUGS (6)
  1. LEVOTHYROXINE SODIUM [Concomitant]
     Indication: HYPOTHYROIDISM
     Dosage: UNK
     Route: 048
  2. ELOXATIN [Suspect]
     Indication: COLON CANCER
     Dosage: UNK
     Route: 042
     Dates: start: 20070130, end: 20070130
  3. LEUCOVORIN CALCIUM [Suspect]
     Dosage: UNK
     Route: 065
     Dates: start: 20070130, end: 20070130
  4. FLUOROURACIL [Suspect]
     Dosage: UNK
     Route: 065
     Dates: start: 20070130, end: 20070131
  5. CA/MG OR PLACEBO [Suspect]
     Dosage: UNK
     Route: 065
  6. OMEPRAZOLE [Concomitant]
     Route: 048
     Dates: start: 20070118

REACTIONS (2)
  - HYPERSENSITIVITY [None]
  - PARAESTHESIA [None]
